FAERS Safety Report 7739545-5 (Version None)
Quarter: 2011Q3

REPORT INFORMATION
  Report Type: 
  Country: None (occurrence: None)
  Receive Date: 20110909
  Receipt Date: 20110902
  Transmission Date: 20111222
  Serious: Yes (Other)
  Sender: FDA-Public Use
  Company Number: BE-PFIZER INC-2011210614

PATIENT
  Sex: Male

DRUGS (3)
  1. AMIODARONE HCL [Suspect]
     Indication: ATRIAL FIBRILLATION
     Dosage: 200 MG, 1X/DAY
     Route: 048
     Dates: start: 20090101
  2. SINTROM [Concomitant]
  3. PERINDOPRIL ERBUMINE [Concomitant]

REACTIONS (4)
  - LYMPHOMA [None]
  - LYMPHADENOPATHY [None]
  - DYSPNOEA [None]
  - LUNG DISORDER [None]
